FAERS Safety Report 7777372-3 (Version None)
Quarter: 2011Q3

REPORT INFORMATION
  Report Type: 
  Country: None (occurrence: None)
  Receive Date: 20110926
  Receipt Date: 20110922
  Transmission Date: 20111222
  Serious: Yes (Disabling, Other)
  Sender: FDA-Public Use
  Company Number: PHHY2011FR76817

PATIENT
  Sex: Female
  Weight: 60 kg

DRUGS (3)
  1. FEMARA [Suspect]
     Indication: BREAST CANCER
     Dosage: 1 DF, QD
     Dates: start: 20080828
  2. VITAMIN D [Concomitant]
     Dosage: UNK UKN, UNK
     Route: 065
     Dates: start: 20080910
  3. CALCIUM CARBONATE [Concomitant]
     Dosage: UNK
     Route: 065
     Dates: start: 20080910

REACTIONS (6)
  - SPONDYLOLISTHESIS [None]
  - STRESS FRACTURE [None]
  - PERIARTHRITIS [None]
  - FIBULA FRACTURE [None]
  - ARTHRALGIA [None]
  - ANKLE FRACTURE [None]
